FAERS Safety Report 6114031-7 (Version None)
Quarter: 2009Q1

REPORT INFORMATION
  Report Type: 
  Country: None (occurrence: None)
  Receive Date: 20090312
  Receipt Date: 20090219
  Transmission Date: 20090719
  Serious: No
  Sender: FDA-Public Use
  Company Number: US-ABBOTT-08P-163-0493250-00

PATIENT
  Sex: Female

DRUGS (6)
  1. LUPRON DEPOT [Suspect]
     Indication: ENDOMETRIOSIS
     Route: 030
     Dates: start: 20080501, end: 20080801
  2. UNKNOWN DEPRESSION MEDICATION [Concomitant]
     Indication: DEPRESSION
  3. UNKNOWN SLEEPING MEDICATION [Concomitant]
     Indication: SLEEP DISORDER
  4. UNKNOWN NAUSEA MEDICATION [Concomitant]
     Indication: NAUSEA
  5. CALCIUM [Concomitant]
     Indication: MINERAL SUPPLEMENTATION
     Route: 048
  6. XANAX [Concomitant]
     Indication: ANXIETY
     Route: 048

REACTIONS (17)
  - ABDOMINAL PAIN [None]
  - ANXIETY [None]
  - BACK PAIN [None]
  - BONE PAIN [None]
  - CYSTITIS NONINFECTIVE [None]
  - DEPRESSION [None]
  - DYSPNOEA [None]
  - FATIGUE [None]
  - HOT FLUSH [None]
  - LOCALISED OEDEMA [None]
  - MICTURITION URGENCY [None]
  - MOOD SWINGS [None]
  - MUSCLE CONTRACTURE [None]
  - OSTEOPENIA [None]
  - PAIN [None]
  - VAGINAL DISCHARGE [None]
  - VERBAL ABUSE [None]
